FAERS Safety Report 20946394 (Version 1)
Quarter: 2022Q2

REPORT INFORMATION
  Report Type: Spontaneous
  Country: US (occurrence: US)
  Receive Date: 20220610
  Receipt Date: 20220610
  Transmission Date: 20220721
  Serious: Yes (Other)
  Sender: FDA-Public Use
  Company Number: US-GE HEALTHCARE-2022CSU003979

PATIENT
  Age: 41 Year
  Sex: Male

DRUGS (2)
  1. OMNIPAQUE [Suspect]
     Active Substance: IOHEXOL
     Indication: Computerised tomogram head
     Dosage: 100 ML, SINGLE
     Route: 042
     Dates: start: 20220603, end: 20220603
  2. OMNIPAQUE [Suspect]
     Active Substance: IOHEXOL
     Indication: Swelling face

REACTIONS (3)
  - Urticaria [Recovered/Resolved]
  - Vomiting [Recovered/Resolved]
  - Cough [Recovered/Resolved]

NARRATIVE: CASE EVENT DATE: 20220603
